FAERS Safety Report 4879310-X (Version None)
Quarter: 2005Q4

REPORT INFORMATION
  Report Type: 
  Country: None (occurrence: None)
  Receive Date: 20051207
  Receipt Date: 20041025
  Transmission Date: 20060501
  Serious: Yes (Other)
  Sender: FDA-Public Use
  Company Number: 2004079004

PATIENT
  Age: 43 Year
  Sex: Male
  Weight: 86.1834 kg

DRUGS (4)
  1. VIAGRA [Suspect]
     Indication: SEXUAL DYSFUNCTION
     Dosage: UNKNOWN (100 MG, UNKNOWN), ORAL
     Route: 048
     Dates: start: 20041001
  2. LISINOPRIL [Concomitant]
  3. GLIMEPIRIDE [Concomitant]
  4. METFORMIN HCL [Concomitant]

REACTIONS (3)
  - ERECTILE DYSFUNCTION [None]
  - ERECTION INCREASED [None]
  - INTENTIONAL DRUG MISUSE [None]
